FAERS Safety Report 15235226 (Version 1)
Quarter: 2018Q3

REPORT INFORMATION
  Report Type: Spontaneous
  Country: US (occurrence: US)
  Receive Date: 20180803
  Receipt Date: 20180803
  Transmission Date: 20181010
  Serious: Yes (Other)
  Sender: FDA-Public Use
  Company Number: US-ROCHE-2162060

PATIENT
  Sex: Female

DRUGS (4)
  1. ASPIRIN. [Concomitant]
     Active Substance: ASPIRIN
     Dosage: AS NEEDED
     Route: 065
  2. VALIUM [Suspect]
     Active Substance: DIAZEPAM
     Dosage: ONGOING: YES
     Route: 065
  3. LEXAPRO [Concomitant]
     Active Substance: ESCITALOPRAM OXALATE
     Dosage: ONGOING: NO
     Route: 065
     Dates: start: 2016, end: 2018
  4. VALIUM [Suspect]
     Active Substance: DIAZEPAM
     Indication: PRODUCT USED FOR UNKNOWN INDICATION
     Dosage: ONGOING: NO
     Route: 065

REACTIONS (9)
  - Drug ineffective [Unknown]
  - Muscle tightness [Unknown]
  - Weight decreased [Recovered/Resolved]
  - Gait inability [Not Recovered/Not Resolved]
  - Temporomandibular joint syndrome [Not Recovered/Not Resolved]
  - Eating disorder [Unknown]
  - Lower limb fracture [Unknown]
  - Headache [Not Recovered/Not Resolved]
  - Muscle spasms [Unknown]

NARRATIVE: CASE EVENT DATE: 2013
